FAERS Safety Report 7865905-8 (Version None)
Quarter: 2011Q4

REPORT INFORMATION
  Report Type: 
  Country: None (occurrence: None)
  Receive Date: 20111028
  Receipt Date: 20110319
  Transmission Date: 20120403
  Serious: Yes (Disabling)
  Sender: FDA-Public Use
  Company Number: US-GLAXOSMITHKLINE-A0918932A

PATIENT
  Age: 55 Year
  Sex: Male

DRUGS (5)
  1. ADVAIR DISKUS 100/50 [Suspect]
     Indication: ASTHMA
     Dosage: 1PUFF TWICE PER DAY
     Route: 055
     Dates: start: 20110318, end: 20110319
  2. ZYRTEC [Concomitant]
  3. CRESTOR [Concomitant]
  4. FLONASE [Concomitant]
  5. ALBUTEROL [Concomitant]
     Route: 055

REACTIONS (1)
  - DIARRHOEA [None]
